FAERS Safety Report 11143821 (Version 3)
Quarter: 2015Q3

REPORT INFORMATION
  Report Type: Spontaneous
  Country: US (occurrence: US)
  Receive Date: 20150528
  Receipt Date: 20150701
  Transmission Date: 20151125
  Serious: Yes (Other)
  Sender: FDA-Public Use
  Company Number: US-ROCHE-1584590

PATIENT
  Age: 84 Year
  Sex: Female

DRUGS (1)
  1. ACTEMRA [Suspect]
     Active Substance: TOCILIZUMAB
     Indication: RHEUMATOID ARTHRITIS
     Dosage: ON 10/JUN/2015, LAST DOSE OF TOCILIZUMAB.
     Route: 058
     Dates: start: 20141118

REACTIONS (3)
  - Pain [Unknown]
  - Gait disturbance [Unknown]
  - Contusion [Unknown]

NARRATIVE: CASE EVENT DATE: 20150517
